FAERS Safety Report 23399275 (Version 1)
Quarter: 2024Q1

REPORT INFORMATION
  Report Type: Spontaneous
  Country: US (occurrence: US)
  Receive Date: 20240113
  Receipt Date: 20240113
  Transmission Date: 20240410
  Serious: No
  Sender: FDA-Public Use
  Company Number: US-DRL-USA-SPO/USA/24/0000442

PATIENT
  Age: 22 Year

DRUGS (10)
  1. ZENATANE [Suspect]
     Active Substance: ISOTRETINOIN
     Indication: Acne
     Dates: start: 20230714
  2. ZENATANE [Suspect]
     Active Substance: ISOTRETINOIN
     Dates: start: 20230714
  3. ZENATANE [Suspect]
     Active Substance: ISOTRETINOIN
     Dates: start: 20230815
  4. ZENATANE [Suspect]
     Active Substance: ISOTRETINOIN
     Dates: start: 20230919
  5. ZENATANE [Suspect]
     Active Substance: ISOTRETINOIN
     Dates: start: 20230815
  6. ZENATANE [Suspect]
     Active Substance: ISOTRETINOIN
     Dates: start: 20230919
  7. ZENATANE [Suspect]
     Active Substance: ISOTRETINOIN
     Dates: start: 20231026
  8. ZENATANE [Suspect]
     Active Substance: ISOTRETINOIN
     Dates: start: 20231026
  9. ZENATANE [Suspect]
     Active Substance: ISOTRETINOIN
     Dates: start: 20231127
  10. ZENATANE [Suspect]
     Active Substance: ISOTRETINOIN
     Dosage: DRL BOX OF 30 (3X 10)
     Dates: start: 20231127

REACTIONS (1)
  - Epistaxis [Unknown]

NARRATIVE: CASE EVENT DATE: 20240103
